FAERS Safety Report 8992427 (Version 1)
Quarter: 2012Q4

REPORT INFORMATION
  Report Type: 
  Country: IN (occurrence: IN)
  Receive Date: 20121231
  Receipt Date: 20121231
  Transmission Date: 20130627
  Serious: Yes (Hospitalization, Other)
  Sender: FDA-Public Use
  Company Number: IN-JNJFOC-20121213474

PATIENT
  Age: 6 Year
  Sex: Female

DRUGS (1)
  1. HALOPERIDOL [Suspect]
     Indication: ACCIDENTAL EXPOSURE TO PRODUCT
     Dosage: indeterminate amount of 5 mg haloperidol tablets
     Route: 048

REACTIONS (12)
  - Accidental exposure to product by child [Unknown]
  - Depressed level of consciousness [Recovered/Resolved]
  - Vomiting [Unknown]
  - Agitation [Unknown]
  - Pyrexia [Unknown]
  - Hypotension [Unknown]
  - Tachycardia [Unknown]
  - Hyperhidrosis [Unknown]
  - Dystonia [Recovered/Resolved]
  - Opisthotonus [Unknown]
  - Hyperreflexia [Unknown]
  - Clonus [Unknown]
